FAERS Safety Report 8196277-X (Version None)
Quarter: 2012Q1

REPORT INFORMATION
  Report Type: 
  Country: None (occurrence: None)
  Receive Date: 20120309
  Receipt Date: 20120308
  Transmission Date: 20120608
  Serious: No
  Sender: FDA-Public Use
  Company Number: US-PFIZER INC-2012058477

PATIENT
  Sex: Female

DRUGS (2)
  1. ZOLOFT [Suspect]
  2. PAXIL [Suspect]

REACTIONS (1)
  - NAUSEA [None]
